FAERS Safety Report 7009809-1 (Version None)
Quarter: 2010Q3

REPORT INFORMATION
  Report Type: 
  Country: None (occurrence: None)
  Receive Date: 20100923
  Receipt Date: 20100913
  Transmission Date: 20110219
  Serious: Yes (Other)
  Sender: FDA-Public Use
  Company Number: DE-ROCHE-722884

PATIENT
  Sex: Female
  Weight: 82 kg

DRUGS (5)
  1. AVASTIN [Suspect]
     Route: 042
     Dates: start: 20100408, end: 20100722
  2. PACLITAXEL [Concomitant]
     Dosage: GIVEN ON DAYS 1, 8 AND 15
     Dates: start: 20100408
  3. DEXAMETHASONE TAB [Concomitant]
     Dates: start: 20100408
  4. RANITIDINE HCL [Concomitant]
     Route: 042
     Dates: start: 20100408
  5. CLEMASTIN [Concomitant]
     Route: 042
     Dates: start: 20100408

REACTIONS (2)
  - NASAL SEPTUM DISORDER [None]
  - SKIN ULCER [None]
